FAERS Safety Report 9474556 (Version 1)
Quarter: 2013Q3

REPORT INFORMATION
  Report Type: Spontaneous
  Country: BR (occurrence: BR)
  Receive Date: 20130823
  Receipt Date: 20130823
  Transmission Date: 20140515
  Serious: Yes (Hospitalization)
  Sender: FDA-Public Use
  Company Number: BR-B.I. PHARMACEUTICALS,INC./RIDGEFIELD-2013-BR-00932BR

PATIENT
  Age: 85 Year
  Sex: Male
  Weight: 73 kg

DRUGS (12)
  1. SECOTEX ADV [Suspect]
     Indication: BLOOD URINE PRESENT
     Dosage: 0.4 MG
     Route: 048
     Dates: start: 20130625, end: 20130710
  2. SECOTEX ADV [Suspect]
     Indication: URINARY BLADDER HAEMORRHAGE
     Dosage: 0.4 MG
     Route: 048
     Dates: start: 20130813
  3. LOSARTANA [Concomitant]
     Indication: HYPERTENSION
  4. ANLODIPINE [Concomitant]
     Indication: HYPERTENSION
  5. ZYLORIC [Concomitant]
     Indication: BLOOD URIC ACID
  6. ROZUNVASTATIN [Concomitant]
     Indication: BLOOD CHOLESTEROL INCREASED
  7. METICORTEN [Concomitant]
     Indication: PRURITUS
     Dosage: 150 MG
     Dates: start: 20130804
  8. METICORTEN [Concomitant]
     Indication: BLISTER
  9. METICORTEN [Concomitant]
     Indication: SKIN IRRITATION
  10. METICORTEN [Concomitant]
     Indication: WOUND
  11. METICORTEN [Concomitant]
     Indication: HYPERSENSITIVITY
  12. METFORMIN [Concomitant]
     Indication: DIABETES MELLITUS

REACTIONS (6)
  - Diabetes mellitus [Recovered/Resolved]
  - Pruritus [Recovered/Resolved]
  - Blister [Recovered/Resolved]
  - Skin irritation [Recovered/Resolved]
  - Wound [Recovered/Resolved]
  - Hypersensitivity [Recovered/Resolved]
